FAERS Safety Report 11937628 (Version 1)
Quarter: 2016Q1

REPORT INFORMATION
  Report Type: Report from Study
  Country: NL (occurrence: NL)
  Receive Date: 20160122
  Receipt Date: 20160122
  Transmission Date: 20160526
  Serious: Yes (Death, Other)
  Sender: FDA-Public Use
  Company Number: NL-AMGEN-NLDSL2016005567

PATIENT
  Age: 76 Year
  Sex: Male

DRUGS (15)
  1. METOCLOPRAMIDE. [Concomitant]
     Active Substance: METOCLOPRAMIDE
     Dosage: 10 MG, UNK
  2. MICONAZOL [Concomitant]
     Active Substance: MICONAZOLE NITRATE
     Dosage: 20 MG/G, UNK
  3. FENTANYL. [Concomitant]
     Active Substance: FENTANYL
     Dosage: 12 MUG, UNK
  4. XGEVA [Suspect]
     Active Substance: DENOSUMAB
     Indication: METASTASES TO BONE
     Dosage: 120 MG, Q4WK
     Route: 058
     Dates: start: 20121107
  5. DEXAMETHASON                       /00016001/ [Concomitant]
     Active Substance: DEXAMETHASONE
     Dosage: 4 MG, UNK
  6. CALCIUM CARBONATE W/COLECALCIFEROL [Concomitant]
     Active Substance: CALCIUM CARBONATE\CHOLECALCIFEROL
     Dosage: 1.25 G/440IE (550 MG CA)
  7. GOSERELIN [Concomitant]
     Active Substance: GOSERELIN
     Dosage: 10.8 MG, UNK
  8. OMEPRAZOLE. [Concomitant]
     Active Substance: OMEPRAZOLE
     Dosage: 40 MG, UNK
  9. SALBUTAMOL [Concomitant]
     Active Substance: ALBUTEROL
     Dosage: 100 MCG/DO
  10. PARACETAMOL [Concomitant]
     Active Substance: ACETAMINOPHEN
     Dosage: 500 MG, UNK
  11. COD-LIVER OIL [Concomitant]
     Active Substance: FISH OIL
     Dosage: 30 MG/G, UNK
  12. BREWER^S YEAST [Concomitant]
     Dosage: 10 MG/G, UNK
  13. DICLOFENAC [Concomitant]
     Active Substance: DICLOFENAC
     Dosage: 50 MG, UNK
  14. MISOPROSTOL. [Concomitant]
     Active Substance: MISOPROSTOL
     Dosage: 200 MUG, UNK
  15. GRANISETRON [Concomitant]
     Active Substance: GRANISETRON
     Dosage: 2 MG, UNK

REACTIONS (17)
  - Death [Fatal]
  - Nausea [Unknown]
  - Pain in extremity [Unknown]
  - Anal abscess [Unknown]
  - Prostate cancer metastatic [Unknown]
  - Neutropenia [Unknown]
  - Enteritis [Unknown]
  - Pneumonia [Unknown]
  - Pulmonary embolism [Unknown]
  - Metastases to bone [Unknown]
  - Hypocalcaemia [Unknown]
  - Candida infection [Unknown]
  - Diarrhoea [Unknown]
  - Pancytopenia [Unknown]
  - Hepatic steatosis [Unknown]
  - Malaise [Unknown]
  - Back pain [Unknown]

NARRATIVE: CASE EVENT DATE: 20121119
